FAERS Safety Report 11092479 (Version 1)
Quarter: 2015Q2

REPORT INFORMATION
  Report Type: Spontaneous
  Country: US (occurrence: None)
  Receive Date: 20150505
  Receipt Date: 20150505
  Transmission Date: 20150821
  Serious: Yes (Other)
  Sender: FDA-Public Use
  Company Number: None

PATIENT
  Age: 38 Year
  Sex: Female
  Weight: 104.33 kg

DRUGS (9)
  1. CORTICOSTEROID [Suspect]
     Active Substance: CORTICOSTEROID NOS
     Indication: SCIATICA
     Dosage: INJECTED INTO SPINAL AREA
  2. CYMBALTA [Concomitant]
     Active Substance: DULOXETINE HYDROCHLORIDE
  3. SONATA [Concomitant]
     Active Substance: ZALEPLON
  4. NORVASC [Concomitant]
     Active Substance: AMLODIPINE BESYLATE
  5. DOXIPINE [Concomitant]
  6. ADVAIR HFA [Concomitant]
     Active Substance: FLUTICASONE PROPIONATE\SALMETEROL XINAFOATE
  7. MELATONIN [Concomitant]
     Active Substance: MELATONIN
  8. LISINIPRIL 5MG [Concomitant]
     Active Substance: LISINOPRIL
  9. KLONOPINE [Concomitant]

REACTIONS (6)
  - Headache [None]
  - Bone disorder [None]
  - Fatigue [None]
  - Asthenia [None]
  - Feeling hot [None]
  - Arthralgia [None]

NARRATIVE: CASE EVENT DATE: 20150501
